FAERS Safety Report 9767470 (Version 2)
Quarter: 2014Q3

REPORT INFORMATION
  Report Type: Spontaneous
  Country: US (occurrence: US)
  Receive Date: 20131217
  Receipt Date: 20140812
  Transmission Date: 20150326
  Serious: Yes (Hospitalization, Other)
  Sender: FDA-Public Use
  Company Number: US-009507513-1312USA007741

PATIENT
  Sex: Female

DRUGS (1)
  1. NUVARING [Suspect]
     Active Substance: ETHINYL ESTRADIOL\ETONOGESTREL
     Indication: CONTRACEPTION
     Dosage: UNK
     Route: 067
     Dates: end: 20130730

REACTIONS (11)
  - Neuroma [Unknown]
  - Neurectomy [Unknown]
  - Pulmonary embolism [Unknown]
  - Pain [Not Recovered/Not Resolved]
  - Ovarian cyst [Unknown]
  - Hilar lymphadenopathy [Unknown]
  - Asthma [Unknown]
  - Neurectomy [Unknown]
  - Foot fracture [Unknown]
  - Fibromyalgia [Unknown]
  - Neurectomy [Unknown]

NARRATIVE: CASE EVENT DATE: 2005
